FAERS Safety Report 10175203 (Version 1)
Quarter: 2014Q2

REPORT INFORMATION
  Report Type: Spontaneous
  Country: US (occurrence: US)
  Receive Date: 20140515
  Receipt Date: 20140515
  Transmission Date: 20141212
  Serious: No
  Sender: FDA-Public Use
  Company Number: US-VIVUS-2014V1000064

PATIENT
  Age: 42 Year
  Sex: Female
  Weight: 97.61 kg

DRUGS (4)
  1. QSYMIA 3.75MG/23MG [Suspect]
     Indication: WEIGHT DECREASED
     Route: 048
     Dates: start: 20140125, end: 20140125
  2. QSYMIA 3.75MG/23MG [Suspect]
     Route: 048
     Dates: start: 20140115, end: 20140124
  3. QSYMIA 3.75MG/23MG [Suspect]
     Route: 048
     Dates: start: 20140126
  4. EXFORGE [Concomitant]
     Indication: HYPERTENSION
     Dosage: 320MG/10MG/25MG, STARTED OVER A YEAR AGO
     Route: 048

REACTIONS (4)
  - Ear discomfort [Recovered/Resolved]
  - Hypoaesthesia [Recovered/Resolved]
  - Paraesthesia [Recovered/Resolved]
  - Inappropriate schedule of drug administration [Recovered/Resolved]
